FAERS Safety Report 7458353-6 (Version None)
Quarter: 2011Q2

REPORT INFORMATION
  Report Type: 
  Country: None (occurrence: None)
  Receive Date: 20110504
  Receipt Date: 20110429
  Transmission Date: 20111010
  Serious: Yes (Death, Hospitalization)
  Sender: FDA-Public Use
  Company Number: A0727537A

PATIENT
  Age: 66 Year
  Sex: Male
  Weight: 95.2 kg

DRUGS (4)
  1. METFORMIN [Concomitant]
  2. AVANDIA [Suspect]
     Dosage: 4MG UNKNOWN
     Route: 065
     Dates: start: 20021113, end: 20060317
  3. AMARYL [Concomitant]
  4. LOVASTATIN [Concomitant]

REACTIONS (2)
  - MYOCARDIAL INFARCTION [None]
  - CARDIO-RESPIRATORY ARREST [None]
